FAERS Safety Report 10692349 (Version 1)
Quarter: 2015Q1

REPORT INFORMATION
  Report Type: Spontaneous
  Country: US (occurrence: None)
  Receive Date: 20150102
  Receipt Date: 20150102
  Transmission Date: 20150720
  Serious: Yes (Other)
  Sender: FDA-Public Use
  Company Number: ADR-2014-02391

PATIENT
  Age: 11 Year
  Sex: Male

DRUGS (1)
  1. BACLOFEN INTRATHECAL [Suspect]
     Active Substance: BACLOFEN
     Indication: MUSCLE SPASTICITY

REACTIONS (11)
  - Device kink [None]
  - Device issue [None]
  - Brain stem syndrome [None]
  - Depressed level of consciousness [None]
  - Hypotension [None]
  - Clonus [None]
  - Bradycardia [None]
  - Autonomic nervous system imbalance [None]
  - Overdose [None]
  - Areflexia [None]
  - Hypotonia [None]
